FAERS Safety Report 13027999 (Version 3)
Quarter: 2017Q2

REPORT INFORMATION
  Report Type: Report from Study
  Country: KR (occurrence: KR)
  Receive Date: 20161214
  Receipt Date: 20170412
  Transmission Date: 20170830
  Serious: Yes (Other)
  Sender: FDA-Public Use
  Company Number: PHHY2016KR157577

PATIENT
  Age: 79 Year
  Sex: Male

DRUGS (56)
  1. BANAN [Concomitant]
     Active Substance: CEFPODOXIME PROXETIL
     Dosage: 200 MG, UNK
     Route: 048
     Dates: start: 20150302, end: 20150309
  2. CEFACLOR. [Concomitant]
     Active Substance: CEFACLOR
     Indication: PROPHYLAXIS
     Dosage: 250 MG, UNK
     Route: 048
     Dates: start: 20140526, end: 20140526
  3. DAXAS [Concomitant]
     Active Substance: ROFLUMILAST
     Dosage: 500 UG, UNK
     Route: 048
     Dates: start: 20140527, end: 20140529
  4. DICAMAX [Concomitant]
     Indication: PROPHYLAXIS
     Dosage: 1 DF (TAB), UNK
     Route: 048
     Dates: start: 20141017, end: 20150225
  5. DURICEF [Concomitant]
     Active Substance: CEFADROXIL
     Indication: PRODUCT USED FOR UNKNOWN INDICATION
     Dosage: 1000 MG, UNK
     Route: 048
     Dates: start: 20150915, end: 20150915
  6. DUROGESIC [Concomitant]
     Active Substance: FENTANYL
     Indication: PRODUCT USED FOR UNKNOWN INDICATION
     Dosage: 37 UG/H, UNK
     Route: 062
     Dates: start: 20150909
  7. EXELON [Concomitant]
     Active Substance: RIVASTIGMINE TARTRATE
     Dosage: 3 MG, UNK
     Route: 048
     Dates: start: 20150102, end: 20150105
  8. WARFARIN SODIUM. [Concomitant]
     Active Substance: WARFARIN SODIUM
     Dosage: 2 MG, UNK
     Route: 048
     Dates: start: 20151013, end: 20151026
  9. ALMAGEL-F [Concomitant]
     Indication: PROPHYLAXIS
     Dosage: 1 DF (PACK), UNK
     Route: 048
     Dates: start: 20140609, end: 20140609
  10. CODEINE [Concomitant]
     Active Substance: CODEINE
     Indication: COUGH
     Dosage: 60 MG, UNK
     Route: 048
     Dates: start: 20140822, end: 20140828
  11. CURAN [Concomitant]
     Active Substance: RANITIDINE HYDROCHLORIDE
     Dosage: 150 MG, UNK
     Route: 048
     Dates: start: 20150504, end: 20150702
  12. CURAN [Concomitant]
     Active Substance: RANITIDINE HYDROCHLORIDE
     Dosage: 75 MG, UNK
     Route: 048
     Dates: start: 20150703
  13. HERBEN SR [Concomitant]
     Indication: PRODUCT USED FOR UNKNOWN INDICATION
     Dosage: 180 MG, UNK
     Route: 048
     Dates: start: 20140312, end: 20140513
  14. ZITHROMAX [Concomitant]
     Active Substance: AZITHROMYCIN DIHYDRATE
     Indication: PROPHYLAXIS
     Dosage: 500 MG, UNK
     Route: 048
     Dates: start: 20141226, end: 20150101
  15. WARFARIN [Concomitant]
     Active Substance: WARFARIN
     Indication: PRODUCT USED FOR UNKNOWN INDICATION
     Dosage: 2 MG, UNK
     Route: 048
     Dates: start: 20140318
  16. RIZE [Concomitant]
     Active Substance: CLOTIAZEPAM
     Indication: SLEEP DISORDER
     Dosage: 2.5 MG, UNK
     Route: 048
     Dates: start: 20140526, end: 20140529
  17. AVELOX [Concomitant]
     Active Substance: MOXIFLOXACIN HYDROCHLORIDE
     Indication: PROPHYLAXIS
     Dosage: 400 MG, UNK
     Route: 048
     Dates: start: 20140620, end: 20140626
  18. CEFACLOR. [Concomitant]
     Active Substance: CEFACLOR
     Dosage: 750 MG, UNK
     Route: 048
     Dates: start: 20140527, end: 20140528
  19. DICAMAX-D [Concomitant]
     Dosage: 1 DF (TAB), UNK
     Route: 048
     Dates: start: 20151130, end: 20151204
  20. LASIX [Concomitant]
     Active Substance: FUROSEMIDE
     Indication: CARDIAC FAILURE
     Dosage: 20 MG, UNK
     Route: 048
     Dates: start: 20150911, end: 20150915
  21. ALDACTONE [Concomitant]
     Active Substance: SPIRONOLACTONE
     Indication: PRODUCT USED FOR UNKNOWN INDICATION
     Dosage: 50 MG, UNK
     Route: 048
     Dates: start: 20151021, end: 20151026
  22. CEFACLOR. [Concomitant]
     Active Substance: CEFACLOR
     Dosage: 300 MG, UNK
     Route: 048
     Dates: start: 20150930, end: 20151006
  23. CODEINE [Concomitant]
     Active Substance: CODEINE
     Dosage: 60 MG, UNK
     Route: 048
     Dates: start: 20140919, end: 20150925
  24. CURAN [Concomitant]
     Active Substance: RANITIDINE HYDROCHLORIDE
     Dosage: 75 MG, UNK
     Route: 048
     Dates: start: 20140527, end: 20150102
  25. CURAN [Concomitant]
     Active Substance: RANITIDINE HYDROCHLORIDE
     Dosage: 75 MG, UNK
     Route: 048
     Dates: start: 20151013, end: 20151023
  26. DIFLUCAN [Concomitant]
     Active Substance: FLUCONAZOLE
     Indication: PRODUCT USED FOR UNKNOWN INDICATION
     Dosage: 50 MG, UNK
     Route: 048
     Dates: start: 20150924, end: 20150930
  27. CODEINPHOSPHAT [Concomitant]
     Dosage: 60 MG, UNK
     Route: 048
     Dates: start: 20140718, end: 20140727
  28. CEFACLOR. [Concomitant]
     Active Substance: CEFACLOR
     Dosage: 1 G, UNK
     Route: 048
     Dates: start: 20140529, end: 20140529
  29. CRAVIT [Concomitant]
     Active Substance: LEVOFLOXACIN
     Dosage: 750 MG, UNK
     Route: 048
     Dates: start: 20151204, end: 20151213
  30. CURAN [Concomitant]
     Active Substance: RANITIDINE HYDROCHLORIDE
     Indication: PROPHYLAXIS
     Dosage: 75 MG, UNK
     Route: 048
     Dates: start: 20140312
  31. CURAN [Concomitant]
     Active Substance: RANITIDINE HYDROCHLORIDE
     Dosage: 150 MG, UNK
     Route: 048
     Dates: start: 20150214, end: 20150216
  32. CURAN [Concomitant]
     Active Substance: RANITIDINE HYDROCHLORIDE
     Dosage: 75 MG, UNK
     Route: 048
     Dates: start: 20150302, end: 20150503
  33. AVELOX [Concomitant]
     Active Substance: MOXIFLOXACIN HYDROCHLORIDE
     Dosage: 400 MG, UNK
     Route: 048
     Dates: start: 20140822, end: 20140828
  34. A-CILLIN [Concomitant]
     Indication: PROPHYLAXIS
     Dosage: 1500 MG, UNK
     Route: 048
     Dates: start: 20150924, end: 20150924
  35. BANAN [Concomitant]
     Active Substance: CEFPODOXIME PROXETIL
     Indication: PROPHYLAXIS
     Dosage: 200 MG, UNK
     Route: 048
     Dates: start: 20141226, end: 20150101
  36. DAXAS [Concomitant]
     Active Substance: ROFLUMILAST
     Dosage: 500 UG, UNK
     Route: 048
     Dates: start: 20151013, end: 20151025
  37. EXELON [Concomitant]
     Active Substance: RIVASTIGMINE TARTRATE
     Dosage: 1.5 MG, UNK
     Route: 048
     Dates: start: 20150106, end: 20150106
  38. LASIX [Concomitant]
     Active Substance: FUROSEMIDE
     Indication: POLYURIA
     Dosage: 20 MG, UNK
     Route: 048
     Dates: start: 20151013, end: 20151019
  39. TASIGNA [Suspect]
     Active Substance: NILOTINIB
     Indication: CHRONIC MYELOID LEUKAEMIA
     Dosage: 600 MG, QD
     Route: 048
     Dates: start: 20140324
  40. ACLOFEN [Concomitant]
     Indication: PRODUCT USED FOR UNKNOWN INDICATION
     Dosage: 100 MG, UNK
     Route: 048
     Dates: start: 20150930, end: 20150930
  41. ALBIS [Concomitant]
     Active Substance: BISMUTH SUBCITRATE\RANITIDINE HYDROCHLORIDE\SUCRALFATE
     Indication: PROPHYLAXIS
     Dosage: 4 DF, UNK
     Route: 048
     Dates: start: 20140609, end: 20140609
  42. CONCOR [Concomitant]
     Active Substance: BISOPROLOL FUMARATE
     Indication: ATRIAL FIBRILLATION
     Dosage: 2.5 MG, UNK
     Route: 048
     Dates: start: 20140529
  43. CRAVIT [Concomitant]
     Active Substance: LEVOFLOXACIN
     Indication: PROPHYLAXIS
     Dosage: 750 MG, UNK
     Route: 048
     Dates: start: 20150106, end: 20150115
  44. CURAN [Concomitant]
     Active Substance: RANITIDINE HYDROCHLORIDE
     Dosage: 75 MG, UNK
     Route: 048
     Dates: start: 20150103, end: 20150213
  45. DULCOLAX NOS [Concomitant]
     Active Substance: BISACODYL OR DOCUSATE SODIUM
     Indication: PRODUCT USED FOR UNKNOWN INDICATION
     Dosage: 2 DF (SUPP), UNK
     Route: 054
     Dates: start: 20150105, end: 20150105
  46. DUPHALAC [Concomitant]
     Active Substance: LACTULOSE
     Indication: PRODUCT USED FOR UNKNOWN INDICATION
     Dosage: 4 ML, UNK
     Route: 048
     Dates: start: 20151019, end: 20151027
  47. EXELON [Concomitant]
     Active Substance: RIVASTIGMINE TARTRATE
     Indication: PROPHYLAXIS
     Dosage: 1.5 MG, UNK
     Route: 048
     Dates: start: 20140527, end: 20140529
  48. LASIX [Concomitant]
     Active Substance: FUROSEMIDE
     Dosage: 20 MG, UNK
     Route: 048
     Dates: start: 20151130, end: 20151203
  49. DAXAS [Concomitant]
     Active Substance: ROFLUMILAST
     Indication: CHRONIC OBSTRUCTIVE PULMONARY DISEASE
     Dosage: UNK
     Route: 048
     Dates: start: 20140311
  50. DAXAS [Concomitant]
     Active Substance: ROFLUMILAST
     Dosage: 500 UG, UNK
     Route: 048
     Dates: start: 20150911, end: 20150915
  51. DICAMAX-D [Concomitant]
     Indication: PROPHYLAXIS
     Dosage: 1 DF (TAB), UNK
     Route: 048
     Dates: start: 20150911, end: 20150915
  52. WARFARIN SODIUM. [Concomitant]
     Active Substance: WARFARIN SODIUM
     Indication: ATRIAL FIBRILLATION
     Dosage: 3 MG, UNK
     Route: 048
     Dates: start: 20140526, end: 20140529
  53. RIZE [Concomitant]
     Active Substance: CLOTIAZEPAM
     Indication: KAPOSI^S SARCOMA
  54. PARAMACET [Concomitant]
     Active Substance: ACETAMINOPHEN\TRAMADOL
     Indication: PAIN PROPHYLAXIS
     Dosage: 1 DF, UNK
     Route: 048
     Dates: start: 20140526, end: 20140529
  55. AVELOX [Concomitant]
     Active Substance: MOXIFLOXACIN HYDROCHLORIDE
     Dosage: 400 MG, UNK
     Route: 048
     Dates: start: 20140718, end: 20140727
  56. CODEINPHOSPHAT [Concomitant]
     Indication: COUGH
     Dosage: 60 MG, UNK
     Route: 048
     Dates: start: 20140620, end: 20140626

REACTIONS (2)
  - Oedema [Not Recovered/Not Resolved]
  - Rash [Not Recovered/Not Resolved]

NARRATIVE: CASE EVENT DATE: 20140523
